FAERS Safety Report 25268753 (Version 5)
Quarter: 2025Q4

REPORT INFORMATION
  Report Type: Report from Study
  Country: US (occurrence: US)
  Receive Date: 20250505
  Receipt Date: 20251030
  Transmission Date: 20260118
  Serious: Yes (Hospitalization, Other)
  Sender: ABBVIE
  Company Number: US-ABBVIE-6261640

PATIENT
  Sex: Female

DRUGS (3)
  1. RINVOQ [Suspect]
     Active Substance: UPADACITINIB
     Indication: Crohn^s disease
     Route: 048
  2. RINVOQ [Suspect]
     Active Substance: UPADACITINIB
     Indication: Crohn^s disease
     Route: 048
  3. RINVOQ [Suspect]
     Active Substance: UPADACITINIB
     Indication: Crohn^s disease
     Route: 048
     Dates: start: 20241201

REACTIONS (5)
  - Osteomyelitis [Recovered/Resolved]
  - Bone marrow disorder [Not Recovered/Not Resolved]
  - Intestinal haemorrhage [Recovered/Resolved]
  - Gastrointestinal disorder [Not Recovered/Not Resolved]
  - Small intestinal ulcer haemorrhage [Recovering/Resolving]
